FAERS Safety Report 9712736 (Version 2)
Quarter: 2014Q2

REPORT INFORMATION
  Report Type: Spontaneous
  Country: US (occurrence: US)
  Receive Date: 20131126
  Receipt Date: 20140510
  Transmission Date: 20141212
  Serious: No
  Sender: FDA-Public Use
  Company Number: US-BRISTOL-MYERS SQUIBB COMPANY-19221761

PATIENT
  Age: 61 Year
  Sex: Female
  Weight: 90.7 kg

DRUGS (2)
  1. BYDUREON [Suspect]
     Indication: TYPE 2 DIABETES MELLITUS
     Dosage: MOST RECENT DOSE ON 24NOV2013.
     Route: 058
     Dates: start: 201309
  2. FLU VACCINE [Suspect]
     Dates: start: 20131113

REACTIONS (2)
  - Blood glucose increased [Not Recovered/Not Resolved]
  - Rash generalised [Unknown]
